FAERS Safety Report 17750466 (Version 1)
Quarter: 2020Q2

REPORT INFORMATION
  Report Type: Report from Study
  Country: PK (occurrence: PK)
  Receive Date: 20200506
  Receipt Date: 20200506
  Transmission Date: 20200714
  Serious: Yes (Death, Hospitalization)
  Sender: FDA-Public Use
  Company Number: NVSC2020PK122632

PATIENT
  Age: 53 Year
  Sex: Female
  Weight: 101 kg

DRUGS (1)
  1. KISQALI [Suspect]
     Active Substance: RIBOCICLIB
     Indication: BREAST CANCER METASTATIC
     Dosage: 3 DF, QD (600 MG)
     Route: 048
     Dates: start: 20200218, end: 20200318

REACTIONS (4)
  - Dyspnoea [Unknown]
  - Malignant neoplasm progression [Fatal]
  - Pulmonary oedema [Unknown]
  - Breast cancer metastatic [Fatal]

NARRATIVE: CASE EVENT DATE: 20200320
